FAERS Safety Report 6120787-X (Version None)
Quarter: 2009Q1

REPORT INFORMATION
  Report Type: 
  Country: None (occurrence: None)
  Receive Date: 20090312
  Receipt Date: 20090305
  Transmission Date: 20090719
  Serious: Yes (Hospitalization)
  Sender: FDA-Public Use
  Company Number: 2009SP002756

PATIENT
  Age: 34 Year
  Sex: Male
  Weight: 80 kg

DRUGS (1)
  1. PEG-INTRON [Suspect]
     Indication: HEPATITIS B
     Dosage: 100 MCG;QW;SC
     Route: 058
     Dates: start: 20080411, end: 20080919

REACTIONS (2)
  - CONDITION AGGRAVATED [None]
  - HEPATITIS B [None]
